FAERS Safety Report 21173487 (Version 3)
Quarter: 2022Q3

REPORT INFORMATION
  Report Type: Report from Study
  Country: DE (occurrence: DE)
  Receive Date: 20220804
  Receipt Date: 20220909
  Transmission Date: 20221027
  Serious: Yes (Hospitalization, Other)
  Sender: FDA-Public Use
  Company Number: DE-MYLANLABS-2022M1006609

PATIENT
  Sex: Female

DRUGS (14)
  1. CELECOXIB [Suspect]
     Active Substance: CELECOXIB
     Indication: Axial spondyloarthritis
     Dosage: 400 MILLIGRAM
     Dates: start: 20200101, end: 20200324
  2. CELECOXIB [Suspect]
     Active Substance: CELECOXIB
     Dosage: 200 MILLIGRAM
     Dates: start: 20210320
  3. UNSPECIFIED INGREDIENT [Suspect]
     Active Substance: UNSPECIFIED INGREDIENT
     Dosage: NO DOSE GIVEN
  4. ATORVASTATIN CALCIUM [Suspect]
     Active Substance: ATORVASTATIN CALCIUM
     Indication: Axial spondyloarthritis
     Dosage: 10 MG
     Dates: start: 20200101
  5. LEVETIRACETAM [Suspect]
     Active Substance: LEVETIRACETAM
     Indication: Axial spondyloarthritis
     Dosage: 1500 MG
     Dates: start: 20200401
  6. HULIO [Suspect]
     Active Substance: ADALIMUMAB-FKJP
     Indication: Axial spondyloarthritis
     Dosage: 2 WEEKS;40 MILLIGRAM, Q2W
     Dates: start: 20200225
  7. ASPIRIN [Suspect]
     Active Substance: ASPIRIN
     Indication: Axial spondyloarthritis
     Dosage: UNK
  8. LEVOTHYROXINE [Suspect]
     Active Substance: LEVOTHYROXINE
     Indication: Axial spondyloarthritis
     Dosage: 0.05 MG
     Dates: start: 20200101
  9. FORMOTEROL FUMARATE [Suspect]
     Active Substance: FORMOTEROL FUMARATE
     Indication: Axial spondyloarthritis
     Dosage: 0.02 MG
     Dates: start: 20200101
  10. FALITHROM [Suspect]
     Active Substance: PHENPROCOUMON
     Indication: Axial spondyloarthritis
     Dosage: UNK
     Dates: start: 20200101
  11. XARELTO [Suspect]
     Active Substance: RIVAROXABAN
     Indication: Axial spondyloarthritis
     Dosage: 5 MG
  12. FORMOTEROL [Suspect]
     Active Substance: FORMOTEROL
     Indication: Axial spondyloarthritis
     Dosage: 0.02 MG
     Dates: start: 20200101
  13. TORSEMIDE [Suspect]
     Active Substance: TORSEMIDE
     Indication: Axial spondyloarthritis
     Dosage: 2.5 MG
  14. TORSEMIDE [Suspect]
     Active Substance: TORSEMIDE
     Dosage: 5 MG
     Dates: start: 20210518

REACTIONS (3)
  - Vascular graft infection [Not Recovered/Not Resolved]
  - Vascular graft occlusion [Not Recovered/Not Resolved]
  - Dry gangrene [Not Recovered/Not Resolved]

NARRATIVE: CASE EVENT DATE: 20210504
